FAERS Safety Report 5607324-0 (Version None)
Quarter: 2008Q1

REPORT INFORMATION
  Report Type: 
  Country: None (occurrence: None)
  Receive Date: 20080130
  Receipt Date: 20080121
  Transmission Date: 20080703
  Serious: Yes (Other)
  Sender: FDA-Public Use
  Company Number: IT-JNJFOC-20071201860

PATIENT
  Age: 59 Year
  Sex: Male

DRUGS (9)
  1. TAVANIC [Suspect]
     Indication: PNEUMONIA VIRAL
     Route: 048
  2. PREDNISOLONE [Concomitant]
     Route: 048
  3. PREDNISOLONE [Concomitant]
     Route: 048
  4. PREDNISOLONE [Concomitant]
     Indication: MYASTHENIA GRAVIS
     Route: 048
  5. INSULIN 50/50 [Concomitant]
     Route: 065
  6. HUMAN INSULIN [Concomitant]
     Route: 065
  7. ENALAPRIL [Concomitant]
     Route: 065
  8. AZATHIOPRINE [Concomitant]
     Route: 065
  9. ASPIRIN [Concomitant]
     Route: 065

REACTIONS (1)
  - MYASTHENIA GRAVIS [None]
